FAERS Safety Report 5110837-1 (Version None)
Quarter: 2006Q3

REPORT INFORMATION
  Report Type: 
  Country: None (occurrence: None)
  Receive Date: 20060919
  Receipt Date: 20060731
  Transmission Date: 20061208
  Serious: Yes (Life-Threatening, Hospitalization)
  Sender: FDA-Public Use
  Company Number: DEBAX-S-20060001

PATIENT
  Age: 57 Year
  Sex: Female

DRUGS (19)
  1. NAVELBINE [Suspect]
     Indication: BREAST CANCER METASTATIC
     Dates: start: 19990113
  2. TAXOL [Suspect]
     Indication: BREAST CANCER METASTATIC
     Dosage: 150 MG DAILY
     Dates: start: 19990823
  3. MEGESTAT [Suspect]
     Indication: BREAST CANCER METASTATIC
     Dosage: 160 MG DAILY
     Dates: start: 19980914
  4. CYCLOPHOSPHAMIDE [Suspect]
     Indication: BREAST CANCER METASTATIC
     Dosage: 20 MG/M2 DAILY
     Dates: start: 19990419
  5. METHOTREXATE [Suspect]
     Indication: BREAST CANCER METASTATIC
     Dosage: 20 MG/M2 DAILY
     Dates: start: 19990419, end: 19990701
  6. ANASTROZOLE [Suspect]
     Indication: BREAST CANCER METASTATIC
     Dosage: 1 MG DAILY
     Dates: start: 19981211, end: 19990419
  7. MERCAPTOPURINE [Suspect]
     Indication: BREAST CANCER METASTATIC
     Dosage: 20 MG/M2 DAILY
     Dates: start: 19990419
  8. ISOPTIN [Concomitant]
  9. VITAMIN B6 STREULI [Concomitant]
  10. AREDIA [Concomitant]
  11. ARTHROTEC [Concomitant]
  12. PULMICORT [Concomitant]
  13. BERODUAL [Concomitant]
  14. PENBUTOLOL SULFATE [Concomitant]
  15. NOVODIGAL [Concomitant]
  16. TRIAMTERENE AND HYDROCHLOROTHIAZIDE [Concomitant]
  17. PREDNISONE [Concomitant]
  18. FRAXIPARIN [Concomitant]
  19. DURAGESIC-100 [Concomitant]

REACTIONS (9)
  - CANDIDIASIS [None]
  - DYSGEUSIA [None]
  - ENTEROCOLITIS VIRAL [None]
  - HYPOAESTHESIA [None]
  - INFLUENZA [None]
  - PULMONARY EMBOLISM [None]
  - STOMACH DISCOMFORT [None]
  - VOMITING [None]
  - WEIGHT DECREASED [None]
